FAERS Safety Report 7319266-3 (Version None)
Quarter: 2011Q1

REPORT INFORMATION
  Report Type: 
  Country: None (occurrence: None)
  Receive Date: 20110228
  Receipt Date: 20100105
  Transmission Date: 20110831
  Serious: No
  Sender: FDA-Public Use
  Company Number: A0837743A

PATIENT
  Age: 8 Year
  Sex: Male

DRUGS (4)
  1. CETIRIZINE HCL [Concomitant]
  2. LAMICTAL [Suspect]
     Dosage: 200MG PER DAY
     Route: 048
  3. SEROQUEL [Concomitant]
  4. INDERAL [Concomitant]

REACTIONS (2)
  - RASH [None]
  - EYE PRURITUS [None]
